FAERS Safety Report 9800280 (Version 1)
Quarter: 2014Q1

REPORT INFORMATION
  Report Type: Spontaneous
  Country: FR (occurrence: FR)
  Receive Date: 20140106
  Receipt Date: 20140106
  Transmission Date: 20141002
  Serious: Yes (Other)
  Sender: FDA-Public Use
  Company Number: FR-WATSON-2013-24486

PATIENT
  Age: 66 Year
  Sex: Male

DRUGS (5)
  1. BUDESONIDE [Suspect]
     Indication: ASTHMA
     Dosage: 1 DF, TID LONG TERM
     Route: 055
  2. TAVANIC [Suspect]
     Indication: COUGH
     Dosage: 1 DF, BID
     Route: 048
     Dates: start: 20111024, end: 20111031
  3. PREDNISOLONE (UNKNOWN) [Suspect]
     Indication: ASTHMA
     Dosage: 20 MG, DAILY
     Route: 048
     Dates: start: 2010
  4. ZITHROMAX [Suspect]
     Indication: COUGH
     Dosage: 1 DF, DAILY
     Route: 048
     Dates: start: 20111024
  5. ZOCOR [Suspect]
     Indication: HYPERCHOLESTEROLAEMIA
     Dosage: 1 DF, DAILY  LONG-TERM
     Route: 048

REACTIONS (1)
  - Tendonitis [Not Recovered/Not Resolved]
